FAERS Safety Report 5041500-3 (Version None)
Quarter: 2006Q2

REPORT INFORMATION
  Report Type: 
  Country: None (occurrence: None)
  Receive Date: 20060627
  Receipt Date: 20060615
  Transmission Date: 20061013
  Serious: Yes (Other)
  Sender: FDA-Public Use
  Company Number: 2006054616

PATIENT
  Age: 43 Year
  Sex: Female

DRUGS (2)
  1. GEODON [Suspect]
     Indication: MENTAL DISORDER
     Dosage: 100 MG (2 IN 1 D), ORAL
     Route: 048
     Dates: start: 20050519
  2. CYMBALTA [Suspect]
     Indication: MAJOR DEPRESSION

REACTIONS (2)
  - ALOPECIA [None]
  - SOMATIC DELUSION [None]
